FAERS Safety Report 7744083-X (Version None)
Quarter: 2011Q3

REPORT INFORMATION
  Report Type: 
  Country: None (occurrence: None)
  Receive Date: 20110831
  Receipt Date: 20110824
  Transmission Date: 20111222
  Serious: Yes (Other)
  Sender: FDA-Public Use
  Company Number: 2011SP039997

PATIENT
  Age: 40 Year
  Sex: Male

DRUGS (3)
  1. MIRTAZAPINE [Suspect]
     Indication: DEPRESSION
     Dosage: 30 MG;QD;PO
     Route: 048
     Dates: start: 20040501
  2. ERYTHROMYCIN [Suspect]
  3. CLARITHROMYCIN [Concomitant]

REACTIONS (12)
  - INSOMNIA [None]
  - THINKING ABNORMAL [None]
  - WITHDRAWAL SYNDROME [None]
  - ANXIETY [None]
  - DEHYDRATION [None]
  - APATHY [None]
  - UNEVALUABLE EVENT [None]
  - HYPOKALAEMIA [None]
  - WEIGHT INCREASED [None]
  - DRUG INEFFECTIVE [None]
  - PALPITATIONS [None]
  - BURNING SENSATION [None]
